FAERS Safety Report 13626379 (Version 1)
Quarter: 2017Q2

REPORT INFORMATION
  Report Type: Spontaneous
  Country: US (occurrence: US)
  Receive Date: 20170531
  Receipt Date: 20170531
  Transmission Date: 20170830
  Serious: No
  Sender: FDA-Public Use
  Company Number: US-ASTELLAS-1356768

PATIENT
  Sex: Male

DRUGS (1)
  1. TARCEVA [Suspect]
     Active Substance: ERLOTINIB HYDROCHLORIDE
     Indication: PRODUCT USED FOR UNKNOWN INDICATION
     Dosage: DAILY
     Route: 048
     Dates: start: 20140211

REACTIONS (9)
  - Interstitial lung disease [Unknown]
  - Chest pain [Unknown]
  - Constipation [Unknown]
  - Diarrhoea [Unknown]
  - Tic [Unknown]
  - Oral pain [Unknown]
  - Acne [Unknown]
  - Headache [Unknown]
  - Skin fissures [Unknown]
